FAERS Safety Report 5507557-8 (Version None)
Quarter: 2007Q4

REPORT INFORMATION
  Report Type: 
  Country: None (occurrence: None)
  Receive Date: 20071105
  Receipt Date: 20071105
  Transmission Date: 20080405
  Serious: Yes (Hospitalization)
  Sender: FDA-Public Use
  Company Number: None

PATIENT
  Sex: Male
  Weight: 76.4 kg

DRUGS (2)
  1. DEXAMETHASONE [Suspect]
     Dosage: 240 MG
  2. THALOMID [Suspect]
     Dosage: 3200 MG

REACTIONS (4)
  - ARRHYTHMIA [None]
  - CARDIAC FAILURE CONGESTIVE [None]
  - REFUSAL OF TREATMENT BY PATIENT [None]
  - RESPIRATORY ARREST [None]
